FAERS Safety Report 5905741-2 (Version None)
Quarter: 2008Q4

REPORT INFORMATION
  Report Type: 
  Country: None (occurrence: None)
  Receive Date: 20081002
  Receipt Date: 20080929
  Transmission Date: 20090506
  Serious: Yes (Hospitalization)
  Sender: FDA-Public Use
  Company Number: LT-ASTRAZENECA-2008SE04531

PATIENT
  Age: 65 Year
  Sex: Female
  Weight: 75 kg

DRUGS (2)
  1. BETALOC ZOK [Suspect]
     Indication: HYPERTENSION
     Route: 048
     Dates: start: 20051219, end: 20051221
  2. BETALOC ZOK [Suspect]
     Indication: VENTRICULAR EXTRASYSTOLES
     Route: 048
     Dates: start: 20051219, end: 20051221

REACTIONS (1)
  - ASTHMA [None]
